FAERS Safety Report 6397726-X (Version None)
Quarter: 2009Q4

REPORT INFORMATION
  Report Type: 
  Country: None (occurrence: None)
  Receive Date: 20091012
  Receipt Date: 20091006
  Transmission Date: 20100525
  Serious: Yes (Other)
  Sender: FDA-Public Use
  Company Number: US-KINGPHARMUSA00001-K200901240

PATIENT
  Age: 79 Year
  Sex: Male

DRUGS (3)
  1. ALTACE [Suspect]
     Indication: HYPERTENSION
     Dosage: 10 MG, UNK
  2. ANGIOTENSIN II ANTAGONISTS [Concomitant]
     Indication: HYPERTENSION
  3. ERYTHROPOIETIN HUMAN [Concomitant]

REACTIONS (2)
  - HYPERTENSION [None]
  - HYPOTENSION [None]
